FAERS Safety Report 10146621 (Version 1)
Quarter: 2014Q2

REPORT INFORMATION
  Report Type: Spontaneous
  Country: US (occurrence: None)
  Receive Date: 20140430
  Receipt Date: 20140430
  Transmission Date: 20141212
  Serious: Yes (Hospitalization)
  Sender: FDA-Public Use
  Company Number: None

PATIENT
  Age: 66 Year
  Sex: Female

DRUGS (3)
  1. RIVAROXABAN [Suspect]
     Indication: DEEP VEIN THROMBOSIS
     Route: 048
     Dates: end: 20140124
  2. ALBUTEROL/IPRATROPIUM [Concomitant]
  3. SODIUM BICARBONATE [Concomitant]

REACTIONS (3)
  - Pulmonary embolism [None]
  - Cerebral infarction [None]
  - Cerebrovascular accident [None]
